FAERS Safety Report 23562280 (Version 3)
Quarter: 2024Q2

REPORT INFORMATION
  Report Type: Report from Study
  Country: BE (occurrence: BE)
  Receive Date: 20240226
  Receipt Date: 20240514
  Transmission Date: 20240716
  Serious: Yes (Hospitalization)
  Sender: FDA-Public Use
  Company Number: FR-SA-SAC20240219001059

PATIENT
  Age: 84 Year
  Sex: Female
  Weight: 72.5 kg

DRUGS (40)
  1. ISATUXIMAB [Suspect]
     Active Substance: ISATUXIMAB
     Indication: Plasma cell myeloma refractory
     Dosage: 700 MG, QW
     Route: 065
     Dates: start: 20230912, end: 20230926
  2. ISATUXIMAB [Suspect]
     Active Substance: ISATUXIMAB
     Dosage: 700 MG, BIW
     Dates: start: 20231009, end: 20231030
  3. ISATUXIMAB [Suspect]
     Active Substance: ISATUXIMAB
     Dosage: 710 MG, BIW
     Dates: start: 20231106, end: 20231127
  4. ISATUXIMAB [Suspect]
     Active Substance: ISATUXIMAB
     Dosage: 710 MG, BIW
     Dates: start: 20231204, end: 20231225
  5. ISATUXIMAB [Suspect]
     Active Substance: ISATUXIMAB
     Dosage: 740 MG, BIW
     Dates: start: 20240105, end: 20240126
  6. ISATUXIMAB [Suspect]
     Active Substance: ISATUXIMAB
     Dosage: 700 MG, BIW
     Dates: start: 20240129, end: 20240211
  7. ISATUXIMAB [Suspect]
     Active Substance: ISATUXIMAB
     Dosage: 720 MG, BIW
     Dates: start: 20240212, end: 20240219
  8. ISATUXIMAB [Suspect]
     Active Substance: ISATUXIMAB
     Dosage: 700 MG, QM
     Dates: start: 20240325, end: 20240415
  9. ISATUXIMAB [Suspect]
     Active Substance: ISATUXIMAB
     Dosage: 710 MG, QM
     Dates: start: 20240422
  10. POMALIDOMIDE [Suspect]
     Active Substance: POMALIDOMIDE
     Indication: Plasma cell myeloma refractory
     Dosage: 3 MG, QD
     Dates: start: 20230912, end: 20231001
  11. POMALIDOMIDE [Suspect]
     Active Substance: POMALIDOMIDE
     Dosage: 2 MG, QD
     Dates: start: 20231009, end: 20231030
  12. POMALIDOMIDE [Suspect]
     Active Substance: POMALIDOMIDE
     Dosage: 2 MG, QD
     Dates: start: 20231106, end: 20231127
  13. POMALIDOMIDE [Suspect]
     Active Substance: POMALIDOMIDE
     Dosage: 2 MG, QD
     Dates: start: 20231204, end: 20231225
  14. POMALIDOMIDE [Suspect]
     Active Substance: POMALIDOMIDE
     Dosage: 2 MG, QD
     Dates: start: 20240105, end: 20240126
  15. POMALIDOMIDE [Suspect]
     Active Substance: POMALIDOMIDE
     Dosage: 2 MG, QD
     Dates: start: 20240129, end: 20240208
  16. POMALIDOMIDE [Suspect]
     Active Substance: POMALIDOMIDE
     Dosage: 2 MG, QD
     Dates: start: 20240325, end: 20240415
  17. POMALIDOMIDE [Suspect]
     Active Substance: POMALIDOMIDE
     Dosage: 2 MG, QD
     Dates: start: 20240422
  18. DEXAMETHASONE [Suspect]
     Active Substance: DEXAMETHASONE
     Indication: Plasma cell myeloma refractory
     Dosage: 20 MG, QW
     Dates: start: 20230912, end: 20230918
  19. DEXAMETHASONE [Suspect]
     Active Substance: DEXAMETHASONE
     Dosage: 10 MG, QW
     Dates: start: 20230919, end: 20231001
  20. DEXAMETHASONE [Suspect]
     Active Substance: DEXAMETHASONE
     Dosage: 10 MG, QW
     Dates: start: 20231009, end: 20231030
  21. DEXAMETHASONE [Suspect]
     Active Substance: DEXAMETHASONE
     Dosage: 10 MG, QW
     Dates: start: 20231106, end: 20231127
  22. DEXAMETHASONE [Suspect]
     Active Substance: DEXAMETHASONE
     Dosage: 10 MG, QW
     Dates: start: 20231204, end: 20231225
  23. DEXAMETHASONE [Suspect]
     Active Substance: DEXAMETHASONE
     Dosage: 10 MG, QW
     Dates: start: 20240105, end: 20240126
  24. DEXAMETHASONE [Suspect]
     Active Substance: DEXAMETHASONE
     Dosage: 10 MG, QW
     Dates: start: 20240205, end: 20240219
  25. DEXAMETHASONE [Suspect]
     Active Substance: DEXAMETHASONE
     Dosage: 10 MG, QM
     Dates: start: 20240325, end: 20240415
  26. DEXAMETHASONE [Suspect]
     Active Substance: DEXAMETHASONE
     Dosage: 4 MG, QM
     Dates: start: 20240422
  27. ACYCLOVIR [Concomitant]
     Active Substance: ACYCLOVIR
     Indication: Prophylaxis
     Dosage: UNK
     Dates: start: 20230908
  28. BACTRIM [Concomitant]
     Active Substance: SULFAMETHOXAZOLE\TRIMETHOPRIM
     Indication: Prophylaxis
     Dosage: UNK
     Dates: start: 20230908
  29. FOLIC ACID [Concomitant]
     Active Substance: FOLIC ACID
     Indication: Prophylaxis
     Dosage: UNK
     Dates: start: 20230908, end: 20240226
  30. CALCIUM [Concomitant]
     Active Substance: CALCIUM
     Indication: Prophylaxis
     Dosage: UNK
     Dates: start: 20230908
  31. PANTOPRAZOLE [Concomitant]
     Active Substance: PANTOPRAZOLE
     Indication: Prophylaxis
     Dosage: UNK
     Dates: end: 20240226
  32. CHOLECALCIFEROL [Concomitant]
     Active Substance: CHOLECALCIFEROL
     Indication: Prophylaxis
     Dosage: UNK
     Dates: start: 20230908
  33. ENOXAPARIN SODIUM [Concomitant]
     Active Substance: ENOXAPARIN SODIUM
     Indication: Prophylaxis
     Dosage: UNK
     Dates: start: 20230908, end: 20240105
  34. PERINDOPRIL ARGININE [Concomitant]
     Active Substance: PERINDOPRIL ARGININE
     Indication: Hypertension
     Dosage: UNK
  35. PROPIVERINE HYDROCHLORIDE [Concomitant]
     Active Substance: PROPIVERINE HYDROCHLORIDE
     Dosage: UNK
     Dates: start: 20230605, end: 20240212
  36. DAFALGAN [Concomitant]
     Active Substance: ACETAMINOPHEN
     Indication: Premedication
     Dosage: UNK UNK, BIW
     Dates: start: 20230912, end: 20230912
  37. LEVOCETIRIZINE DIHYDROCHLORIDE [Concomitant]
     Active Substance: LEVOCETIRIZINE DIHYDROCHLORIDE
     Indication: Premedication
     Dosage: UNK UNK, BIW
     Dates: start: 20230912
  38. ASPIRIN [Concomitant]
     Active Substance: ASPIRIN
     Indication: Superficial vein thrombosis
     Dosage: UNK
     Dates: start: 20240106
  39. ASPIRIN [Concomitant]
     Active Substance: ASPIRIN
     Indication: Prophylaxis
  40. METARELAX [Concomitant]
     Indication: Nutritional supplementation
     Dosage: UNK
     Dates: start: 20240105

REACTIONS (2)
  - Aspartate aminotransferase increased [Recovered/Resolved]
  - Alanine aminotransferase increased [Recovered/Resolved]

NARRATIVE: CASE EVENT DATE: 20240212
